FAERS Safety Report 8492420-3 (Version None)
Quarter: 2012Q3

REPORT INFORMATION
  Report Type: 
  Country: None (occurrence: None)
  Receive Date: 20120706
  Receipt Date: 20120702
  Transmission Date: 20120928
  Serious: Yes (Hospitalization)
  Sender: FDA-Public Use
  Company Number: US-TEVA-346654USA

PATIENT
  Age: 13 Month
  Sex: Female
  Weight: 12 kg

DRUGS (1)
  1. DIPHENHYDRAMINE HCL [Suspect]
     Indication: ACCIDENTAL OVERDOSE
     Dosage: MAXIMUM POSSIBLE INGESTION OF 50 MG/KG
     Route: 048

REACTIONS (5)
  - NYSTAGMUS [None]
  - MENTAL STATUS CHANGES [None]
  - ACCIDENTAL OVERDOSE [None]
  - TACHYCARDIA [None]
  - GRAND MAL CONVULSION [None]
